FAERS Safety Report 7978276-3 (Version None)
Quarter: 2011Q4

REPORT INFORMATION
  Report Type: 
  Country: None (occurrence: None)
  Receive Date: 20111214
  Receipt Date: 20111209
  Transmission Date: 20120403
  Serious: Yes (Other)
  Sender: FDA-Public Use
  Company Number: US-PFIZER INC-2010117835

PATIENT
  Sex: Female
  Weight: 59.864 kg

DRUGS (2)
  1. CALCIUM [Concomitant]
     Indication: ARTHRALGIA
     Dosage: UNK
  2. CHANTIX [Suspect]
     Indication: SMOKING CESSATION THERAPY
     Dosage: UNK
     Route: 048
     Dates: start: 20091201, end: 20100201

REACTIONS (8)
  - SLEEP DISORDER [None]
  - NAUSEA [None]
  - SKIN CANCER [None]
  - SKIN BURNING SENSATION [None]
  - ANXIETY [None]
  - CONSTIPATION [None]
  - ALOPECIA [None]
  - IRRITABILITY [None]
